FAERS Safety Report 4613532-8 (Version None)
Quarter: 2005Q1

REPORT INFORMATION
  Report Type: 
  Country: None (occurrence: None)
  Receive Date: 20050318
  Receipt Date: 20050318
  Transmission Date: 20050727
  Serious: Yes (Other)
  Sender: FDA-Public Use
  Company Number: None

PATIENT
  Age: 10 Year
  Sex: Female
  Weight: 45 kg

DRUGS (1)
  1. GLYCOLAX [Suspect]
     Indication: CONSTIPATION
     Dosage: 17 GM DAILY

REACTIONS (4)
  - ABDOMINAL PAIN [None]
  - FAECAL VOLUME INCREASED [None]
  - FLATULENCE [None]
  - INFREQUENT BOWEL MOVEMENTS [None]
